FAERS Safety Report 5630144-8 (Version None)
Quarter: 2008Q1

REPORT INFORMATION
  Report Type: 
  Country: None (occurrence: None)
  Receive Date: 20080219
  Receipt Date: 20080118
  Transmission Date: 20080703
  Serious: No
  Sender: FDA-Public Use
  Company Number: US-BAYER-200812350NA

PATIENT
  Age: 32 Year
  Sex: Female
  Weight: 54 kg

DRUGS (2)
  1. MIRENA [Suspect]
     Indication: CONTRACEPTION
     Route: 015
     Dates: start: 20080101
  2. PRENATAL VITAMINS [Concomitant]
     Indication: POSTPARTUM STATE

REACTIONS (3)
  - HEADACHE [None]
  - UTERINE SPASM [None]
  - VAGINAL HAEMORRHAGE [None]
